FAERS Safety Report 18639904 (Version 1)
Quarter: 2020Q4

REPORT INFORMATION
  Report Type: Spontaneous
  Country: US (occurrence: US)
  Receive Date: 20201220
  Receipt Date: 20201220
  Transmission Date: 20210114
  Serious: No
  Sender: FDA-Public Use
  Company Number: US-PACIRA-201900431

PATIENT

DRUGS (1)
  1. EXPAREL [Suspect]
     Active Substance: BUPIVACAINE
     Indication: WISDOM TEETH REMOVAL
     Dosage: DOSE UNKNOWN
     Route: 065

REACTIONS (2)
  - Infection [Unknown]
  - Product use in unapproved indication [Unknown]
